FAERS Safety Report 4393492-8 (Version None)
Quarter: 2004Q3

REPORT INFORMATION
  Report Type: 
  Country: None (occurrence: None)
  Receive Date: 20040701
  Receipt Date: 20040622
  Transmission Date: 20050211
  Serious: Yes (Hospitalization, Other)
  Sender: FDA-Public Use
  Company Number: 2004042309

PATIENT
  Age: 3 Month
  Sex: Male

DRUGS (1)
  1. MAGNAMYCIN [Suspect]
     Indication: SEPSIS
     Dosage: 70 MG/KG, 2 IN 1 D, INTRAVENOUS
     Route: 042

REACTIONS (1)
  - GASTROINTESTINAL HAEMORRHAGE [None]
